FAERS Safety Report 18753602 (Version 3)
Quarter: 2021Q1

REPORT INFORMATION
  Report Type: Spontaneous
  Country: BR (occurrence: BR)
  Receive Date: 20210118
  Receipt Date: 20210223
  Transmission Date: 20210419
  Serious: No
  Sender: FDA-Public Use
  Company Number: BR-JNJFOC-20210106814

PATIENT
  Sex: Female

DRUGS (12)
  1. DUROGESIC D?TRANS [Suspect]
     Active Substance: FENTANYL
  2. DUROGESIC D?TRANS [Suspect]
     Active Substance: FENTANYL
     Indication: PAIN
     Dosage: STRENGTH: 25.00 MCG/HR
     Route: 062
  3. DUROGESIC D?TRANS [Suspect]
     Active Substance: FENTANYL
  4. DUROGESIC D?TRANS [Suspect]
     Active Substance: FENTANYL
  5. DUROGESIC D?TRANS [Suspect]
     Active Substance: FENTANYL
  6. DUROGESIC D?TRANS [Suspect]
     Active Substance: FENTANYL
  7. DUROGESIC D?TRANS [Suspect]
     Active Substance: FENTANYL
  8. DUROGESIC D?TRANS [Suspect]
     Active Substance: FENTANYL
  9. DUROGESIC D?TRANS [Suspect]
     Active Substance: FENTANYL
  10. DUROGESIC D?TRANS [Suspect]
     Active Substance: FENTANYL
  11. DUROGESIC D?TRANS [Suspect]
     Active Substance: FENTANYL
     Indication: PAIN
     Dosage: STRENGTH: 50.00 MCG/HR
     Route: 062
  12. DUROGESIC D?TRANS [Suspect]
     Active Substance: FENTANYL

REACTIONS (2)
  - Product adhesion issue [Unknown]
  - Wrong technique in product usage process [Unknown]
